FAERS Safety Report 7744753-3 (Version None)
Quarter: 2011Q3

REPORT INFORMATION
  Report Type: 
  Country: None (occurrence: None)
  Receive Date: 20110912
  Receipt Date: 20110912
  Transmission Date: 20111222
  Serious: Yes (Death)
  Sender: FDA-Public Use
  Company Number: None

PATIENT
  Age: 70 Year
  Sex: Female
  Weight: 85.9 kg

DRUGS (1)
  1. WARFARIN SODIUM [Suspect]
     Indication: ATRIAL FIBRILLATION
     Dosage: 5 MG
     Route: 048

REACTIONS (7)
  - FALL [None]
  - LACERATION [None]
  - COMA SCALE ABNORMAL [None]
  - SUBDURAL HAEMATOMA [None]
  - BRAIN MIDLINE SHIFT [None]
  - BRAIN STEM HAEMORRHAGE [None]
  - CONVULSION [None]
